FAERS Safety Report 4635109-0 (Version None)
Quarter: 2005Q2

REPORT INFORMATION
  Report Type: 
  Country: None (occurrence: None)
  Receive Date: 20050414
  Receipt Date: 20050119
  Transmission Date: 20051028
  Serious: Yes (Hospitalization)
  Sender: FDA-Public Use
  Company Number: US-MERCK-0501USA03077

PATIENT
  Age: 65 Year
  Sex: Female
  Weight: 91 kg

DRUGS (12)
  1. VIOXX [Suspect]
     Indication: ARTHRALGIA
     Route: 048
     Dates: start: 20001208, end: 20030426
  2. INSULIN [Concomitant]
     Route: 065
  3. SYNTHROID [Concomitant]
     Route: 065
  4. MAGNESIUM SULFATE [Concomitant]
     Route: 065
  5. HUMULIN [Concomitant]
     Route: 065
  6. PRAVACHOL [Concomitant]
     Route: 065
  7. GLUCOVANCE [Concomitant]
     Route: 065
  8. CLIMARA [Concomitant]
     Route: 065
  9. SLOW FE [Concomitant]
     Route: 065
  10. TUMS [Concomitant]
     Route: 065
  11. ECOTRIN [Concomitant]
     Route: 065
  12. ECOTRIN [Concomitant]
     Route: 065

REACTIONS (4)
  - CAROTID ARTERY OCCLUSION [None]
  - CEREBROVASCULAR ACCIDENT [None]
  - GASTROINTESTINAL HAEMORRHAGE [None]
  - TRANSIENT ISCHAEMIC ATTACK [None]
